FAERS Safety Report 7310357-X (Version None)
Quarter: 2011Q1

REPORT INFORMATION
  Report Type: 
  Country: None (occurrence: None)
  Receive Date: 20110214
  Receipt Date: 20110205
  Transmission Date: 20110831
  Serious: Yes (Hospitalization)
  Sender: FDA-Public Use
  Company Number: 012165

PATIENT
  Age: 79 Year
  Sex: Male

DRUGS (2)
  1. ANGIOTENSIN II RECEPTOR BLOCKER (ANGIOTENSIN II RECEPTOR BLOCKER) [Concomitant]
  2. PLETAL [Suspect]
     Indication: ARTERIOSCLEROSIS OBLITERANS
     Dosage: 100 MG, BID, ORAL
     Route: 048
     Dates: start: 20090901, end: 20091210

REACTIONS (3)
  - ANGIOPLASTY [None]
  - CORONARY ARTERIAL STENT INSERTION [None]
  - ARTERIAL STENT INSERTION [None]
